FAERS Safety Report 12731035 (Version 2)
Quarter: 2018Q4

REPORT INFORMATION
  Report Type: Spontaneous
  Country: NO (occurrence: NO)
  Receive Date: 20160912
  Receipt Date: 20181113
  Transmission Date: 20190204
  Serious: Yes (Other)
  Sender: FDA-Public Use
  Company Number: NO-ACCORD-043926

PATIENT
  Age: 72 Year
  Sex: Male

DRUGS (7)
  1. TAMSULOSIN/TAMSULOSIN HYDROCHLORIDE [Concomitant]
  2. METHOTREXATE. [Suspect]
     Active Substance: METHOTREXATE
     Indication: RHEUMATOID ARTHRITIS
     Route: 048
     Dates: start: 201408, end: 201512
  3. IBUX [Concomitant]
     Active Substance: IBUPROFEN
  4. TADALAFIL. [Concomitant]
     Active Substance: TADALAFIL
  5. FOLSYRE NAF [Concomitant]
     Active Substance: FOLIC ACID
     Indication: DRUG THERAPY
     Dosage: 1 MG FOLIC ACID EVERY DAY EXCEPT THE DAY OF P.O. METHOTREXATE, I.E. 6 DAYS PR WEEK.
     Route: 048
     Dates: start: 201408
  6. PARACET [Concomitant]
     Active Substance: ACETAMINOPHEN
  7. NAPROXEN. [Concomitant]
     Active Substance: NAPROXEN

REACTIONS (2)
  - Dyschromatopsia [Not Recovered/Not Resolved]
  - Visual acuity reduced [Not Recovered/Not Resolved]

NARRATIVE: CASE EVENT DATE: 201507
